FAERS Safety Report 8289949-X (Version None)
Quarter: 2012Q2

REPORT INFORMATION
  Report Type: 
  Country: None (occurrence: None)
  Receive Date: 20120417
  Receipt Date: 20120402
  Transmission Date: 20120825
  Serious: Yes (Hospitalization)
  Sender: FDA-Public Use
  Company Number: JP-ROCHE-767544

PATIENT
  Sex: Female

DRUGS (36)
  1. METHOTREXATE [Suspect]
     Indication: RHEUMATOID ARTHRITIS
     Route: 048
     Dates: start: 20010502, end: 20090628
  2. ACTEMRA [Suspect]
     Indication: RHEUMATOID ARTHRITIS
     Route: 041
     Dates: start: 20090629, end: 20090629
  3. ACTEMRA [Suspect]
     Route: 041
     Dates: start: 20100116, end: 20100116
  4. ACTEMRA [Suspect]
     Route: 041
     Dates: start: 20100508, end: 20100508
  5. PREDNISOLONE AND PREDNISOLONE ACETATE AND PREDNISOLONE SODIUM SUCCINAT [Suspect]
     Route: 042
     Dates: start: 20090824, end: 20090824
  6. PREDNISOLONE AND PREDNISOLONE ACETATE AND PREDNISOLONE SODIUM SUCCINAT [Suspect]
     Route: 042
     Dates: start: 20100408, end: 20110628
  7. FOLIAMIN [Concomitant]
     Dosage: DOSE FORM: PERORAL AGENT
     Route: 048
  8. NATEGLINIDE [Concomitant]
     Dosage: DOSE FORM: PERORAL AGENT
     Route: 048
  9. ACTEMRA [Suspect]
     Route: 041
     Dates: start: 20100309, end: 20100309
  10. ACTEMRA [Suspect]
     Route: 041
     Dates: start: 20100408, end: 20100408
  11. ACTEMRA [Suspect]
     Route: 041
     Dates: start: 20100701, end: 20110218
  12. METHOTREXATE [Suspect]
     Route: 048
     Dates: start: 20090629, end: 20090726
  13. METHOTREXATE [Suspect]
  14. PREDNISOLONE [Concomitant]
     Route: 048
  15. ALENDRONATE SODIUM [Concomitant]
     Dosage: FOSAMAC (ALENDRONATE SODIUM HYDRATE)
     Route: 048
  16. ACTEMRA [Suspect]
     Route: 041
     Dates: start: 20091019, end: 20091019
  17. ACTEMRA [Suspect]
     Route: 041
     Dates: start: 20091117, end: 20091117
  18. ACTEMRA [Suspect]
     Route: 041
     Dates: start: 20100605, end: 20100605
  19. PREDNISOLONE AND PREDNISOLONE ACETATE AND PREDNISOLONE SODIUM SUCCINAT [Suspect]
     Route: 042
     Dates: start: 20090918, end: 20090918
  20. PREDNISOLONE [Concomitant]
     Dosage: DOSE FORM: PERORAL AGENT
     Route: 048
  21. ETODOLAC [Concomitant]
  22. PREDNISOLONE AND PREDNISOLONE ACETATE AND PREDNISOLONE SODIUM SUCCINAT [Suspect]
     Route: 042
     Dates: start: 20090727, end: 20090727
  23. PREDNISOLONE AND PREDNISOLONE ACETATE AND PREDNISOLONE SODIUM SUCCINAT [Suspect]
     Route: 042
     Dates: start: 20091019, end: 20091019
  24. PREDNISOLONE AND PREDNISOLONE ACETATE AND PREDNISOLONE SODIUM SUCCINAT [Suspect]
     Route: 042
     Dates: start: 20091117, end: 20091117
  25. PREDNISOLONE AND PREDNISOLONE ACETATE AND PREDNISOLONE SODIUM SUCCINAT [Suspect]
     Route: 042
     Dates: start: 20091217, end: 20091217
  26. METHOTREXATE [Suspect]
     Route: 048
     Dates: start: 20100701, end: 20110628
  27. ACTEMRA [Suspect]
     Route: 041
     Dates: start: 20090727, end: 20090727
  28. ACTEMRA [Suspect]
     Route: 041
     Dates: start: 20090824, end: 20090824
  29. ACTEMRA [Suspect]
     Route: 041
     Dates: start: 20091217, end: 20091217
  30. ACTEMRA [Suspect]
     Route: 041
     Dates: start: 20090918, end: 20090918
  31. ACTEMRA [Suspect]
     Route: 041
     Dates: start: 20100209, end: 20100209
  32. PREDNISOLONE AND PREDNISOLONE ACETATE AND PREDNISOLONE SODIUM SUCCINAT [Suspect]
     Indication: PROPHYLAXIS
     Dosage: PREDNISOLONE SODIUM SUCCINATE
     Route: 042
     Dates: start: 20090629, end: 20090629
  33. METHOTREXATE [Suspect]
     Route: 048
     Dates: start: 20090727, end: 20100630
  34. RHEUMATREX [Concomitant]
     Indication: RHEUMATOID ARTHRITIS
     Dosage: DOSAGE IS UNCERTAIN
     Route: 048
  35. MUCOSTA [Concomitant]
     Dosage: DOSE FORM: PERORAL AGENT
     Route: 048
  36. OSTELUC [Concomitant]
     Dosage: DOSE FORM: PERORAL AGENT
     Route: 048

REACTIONS (2)
  - HYPERLIPIDAEMIA [None]
  - DIVERTICULITIS INTESTINAL HAEMORRHAGIC [None]
